FAERS Safety Report 5430518-4 (Version None)
Quarter: 2007Q3

REPORT INFORMATION
  Report Type: 
  Country: None (occurrence: None)
  Receive Date: 20070830
  Receipt Date: 20070822
  Transmission Date: 20080115
  Serious: Yes (Death)
  Sender: FDA-Public Use
  Company Number: ES-ELI_LILLY_AND_COMPANY-ES200708005244

PATIENT
  Age: 89 Year
  Sex: Female

DRUGS (1)
  1. FORTEO [Suspect]
     Dosage: 20 UG, UNK
     Route: 058
     Dates: start: 20060601, end: 20070627

REACTIONS (3)
  - ANOREXIA [None]
  - CARDIAC ARREST [None]
  - SYNCOPE [None]
